FAERS Safety Report 9104921 (Version 3)
Quarter: 2013Q2

REPORT INFORMATION
  Report Type: Spontaneous
  Country: KR (occurrence: KR)
  Receive Date: 20130220
  Receipt Date: 20130402
  Transmission Date: 20140414
  Serious: Yes (Other)
  Sender: FDA-Public Use
  Company Number: KR-MYLANLABS-2013S1003398

PATIENT
  Sex: Female

DRUGS (12)
  1. REMIFENTANIL [Suspect]
  2. THIOPENTAL [Concomitant]
     Dosage: OVER 15S
  3. SUXAMETHONIUM [Concomitant]
  4. NORMAL SALINE [Concomitant]
  5. NITROUS OXIDE [Concomitant]
     Dosage: 50%, OXYGEN WITH A FRESH GAS FLOW OF 6 L/MIN)
  6. NITROUS OXIDE [Concomitant]
     Dosage: 67%, OXYGEN, FRESH GAS FLOW WAS REDUCED TO 4 L/MIN)
  7. OXYTOCIN [Concomitant]
     Dosage: (0.9% SALINE 500ML)
  8. FENTANYL [Concomitant]
  9. NEOSTIGMINE [Concomitant]
  10. GLYCOPYRROLATE [Concomitant]
  11. SEVOFLURANE [Concomitant]
     Dosage: 1.2% END TIDAL
  12. SEVOFLURANE [Concomitant]
     Dosage: 0.8% END TIDAL

REACTIONS (2)
  - Hypotension [Unknown]
  - pH urine abnormal [Unknown]
